FAERS Safety Report 16167902 (Version 1)
Quarter: 2019Q2

REPORT INFORMATION
  Report Type: Spontaneous
  Country: US (occurrence: US)
  Receive Date: 20190408
  Receipt Date: 20190408
  Transmission Date: 20190711
  Serious: No
  Sender: FDA-Public Use
  Company Number: US-ACLARIS THERAPEUTICS-2019US000057

PATIENT
  Age: 72 Year
  Sex: Female

DRUGS (4)
  1. ESKATA [Suspect]
     Active Substance: HYDROGEN PEROXIDE
     Indication: SEBORRHOEIC KERATOSIS
     Dosage: 1 DF, 4 TIMES
     Route: 061
     Dates: start: 20181113, end: 20181113
  2. VITAMINS                           /00067501/ [Concomitant]
     Active Substance: VITAMINS
     Indication: PRODUCT USED FOR UNKNOWN INDICATION
     Dosage: UNK
  3. ASPIRIN                            /00002701/ [Concomitant]
     Active Substance: ASPIRIN
     Indication: PRODUCT USED FOR UNKNOWN INDICATION
     Dosage: UNK
  4. ESKATA [Suspect]
     Active Substance: HYDROGEN PEROXIDE
     Dosage: 1 DF, UNK
     Route: 061
     Dates: start: 20190102, end: 20190102

REACTIONS (1)
  - Keloid scar [Not Recovered/Not Resolved]
